FAERS Safety Report 10747782 (Version 7)
Quarter: 2019Q4

REPORT INFORMATION
  Report Type: Spontaneous
  Country: US (occurrence: US)
  Receive Date: 20150129
  Receipt Date: 20191114
  Transmission Date: 20200122
  Serious: Yes (Hospitalization, Other)
  Sender: FDA-Public Use
  Company Number: US-PFIZER INC-2015034396

PATIENT
  Age: 38 Year
  Sex: Female

DRUGS (1)
  1. PREMPRO [Suspect]
     Active Substance: ESTROGENS, CONJUGATED\MEDROXYPROGESTERONE ACETATE
     Indication: PERINATAL DEPRESSION
     Dosage: UNK (0.625 MG/ 2.5 MG)
     Route: 048
     Dates: start: 1974

REACTIONS (4)
  - Malaise [Unknown]
  - Hormone level abnormal [Unknown]
  - Drug dependence [Unknown]
  - Depression [Not Recovered/Not Resolved]

NARRATIVE: CASE EVENT DATE: 1974
